FAERS Safety Report 4761464-7 (Version None)
Quarter: 2005Q3

REPORT INFORMATION
  Report Type: 
  Country: None (occurrence: None)
  Receive Date: 20050906
  Receipt Date: 20050831
  Transmission Date: 20060218
  Serious: Yes (Life-Threatening, Hospitalization)
  Sender: FDA-Public Use
  Company Number: PHBS2005JP12684

PATIENT
  Age: 26 Year
  Sex: Female

DRUGS (3)
  1. IMIPRAMINE HCL [Suspect]
     Indication: BIPOLAR I DISORDER
     Route: 048
  2. LITHIUM CARBONATE [Concomitant]
     Route: 048
  3. BENZODIAZEPINE DERIVATIVES [Concomitant]
     Route: 048

REACTIONS (4)
  - CARDIO-RESPIRATORY ARREST [None]
  - CONVULSION [None]
  - DEPRESSED LEVEL OF CONSCIOUSNESS [None]
  - VENTRICULAR TACHYCARDIA [None]
